FAERS Safety Report 5220730-1 (Version None)
Quarter: 2007Q1

REPORT INFORMATION
  Report Type: 
  Country: None (occurrence: None)
  Receive Date: 20070125
  Receipt Date: 20070125
  Transmission Date: 20070707
  Serious: Yes (Hospitalization)
  Sender: FDA-Public Use
  Company Number: None

PATIENT
  Age: 78 Year
  Sex: Male
  Weight: 76.6579 kg

DRUGS (18)
  1. IRESSA [Suspect]
     Indication: HEPATIC NEOPLASM MALIGNANT
     Dosage: 250 MG PO
     Route: 048
     Dates: start: 20060727, end: 20070115
  2. NEXIUM [Concomitant]
  3. FLOMAX [Concomitant]
  4. SYNTHROID [Concomitant]
  5. GLYBURID [Concomitant]
  6. DIGOXIN [Concomitant]
  7. PROSCAR [Concomitant]
  8. ZERTEK [Concomitant]
  9. METOPROLOL SUCCINATE [Concomitant]
  10. FOLIC ACID [Concomitant]
  11. PLAVIX [Concomitant]
  12. AECOVIT [Concomitant]
  13. CALCIUM [Concomitant]
  14. VITAMIN E [Concomitant]
  15. SPIRONOLOLACTONE [Concomitant]
  16. ASTELIN [Concomitant]
  17. CIPROFLOXXIN [Concomitant]
  18. MEGACE LIQUID [Concomitant]

REACTIONS (5)
  - ASPIRATION [None]
  - BACK PAIN [None]
  - NASOPHARYNGITIS [None]
  - PAIN [None]
  - PNEUMONIA [None]
